FAERS Safety Report 8810253 (Version 1)
Quarter: 2012Q4

REPORT INFORMATION
  Report Type: 
  Country: MY (occurrence: MY)
  Receive Date: 20120926
  Receipt Date: 20120926
  Transmission Date: 20130627
  Serious: Yes (Death)
  Sender: FDA-Public Use
  Company Number: PHHO2006MY05717

PATIENT
  Sex: Female

DRUGS (3)
  1. GLIVEC [Suspect]
     Indication: CHRONIC MYELOID LEUKAEMIA
     Dosage: 200 mg, QD
     Route: 048
     Dates: start: 20050518, end: 20050904
  2. GLIVEC [Suspect]
     Dosage: 100 mg, QD
     Route: 048
     Dates: start: 20050905, end: 20051211
  3. GLIVEC [Suspect]
     Dosage: 200 mg, QD
     Route: 048
     Dates: start: 20051212

REACTIONS (1)
  - Graft versus host disease [Fatal]
